FAERS Safety Report 6447798-9 (Version None)
Quarter: 2009Q4

REPORT INFORMATION
  Report Type: 
  Country: None (occurrence: None)
  Receive Date: 20091120
  Receipt Date: 20090814
  Transmission Date: 20100525
  Serious: No
  Sender: FDA-Public Use
  Company Number: A0790408A

PATIENT
  Age: 64 Year
  Sex: Male

DRUGS (7)
  1. VERAMYST [Suspect]
     Dosage: 2SPR PER DAY
     Route: 045
     Dates: start: 20080101
  2. ASTELIN [Concomitant]
  3. COZAAR [Concomitant]
  4. ZOCOR [Concomitant]
  5. LORA TAB [Concomitant]
  6. TRAMADOL [Concomitant]
  7. SKELAXIN [Concomitant]

REACTIONS (2)
  - PRODUCT QUALITY ISSUE [None]
  - RHINALGIA [None]
